FAERS Safety Report 9342834 (Version 1)
Quarter: 2013Q2

REPORT INFORMATION
  Report Type: Spontaneous
  Country: US (occurrence: None)
  Receive Date: 20130607
  Receipt Date: 20130607
  Transmission Date: 20140414
  Serious: Yes (Life-Threatening, Hospitalization, Other)
  Sender: FDA-Public Use
  Company Number: XL18413002692

PATIENT
  Age: 79 Year
  Sex: Male
  Weight: 71.2 kg

DRUGS (7)
  1. XL-184 [Suspect]
     Indication: PROSTATE CANCER
     Dosage: BLINDED, INFORMATION WITHHELD.
     Dates: start: 20130412, end: 20130507
  2. LASIX [Concomitant]
  3. PREDNISONE [Concomitant]
  4. LUPRON [Concomitant]
  5. MORPHINE [Concomitant]
  6. IBUPROFEN (IBUPROFEN) [Concomitant]
  7. AREDIA [Concomitant]

REACTIONS (3)
  - Large intestine perforation [None]
  - Colonic abscess [None]
  - White blood cell count decreased [None]
